FAERS Safety Report 16005169 (Version 1)
Quarter: 2019Q1

REPORT INFORMATION
  Report Type: Report from Study
  Country: ZA (occurrence: ZA)
  Receive Date: 20190226
  Receipt Date: 20190226
  Transmission Date: 20190418
  Serious: Yes (Hospitalization)
  Sender: FDA-Public Use
  Company Number: ZA-SA-2019SA046743

PATIENT
  Age: 41 Year
  Sex: Male

DRUGS (7)
  1. INSULIN GLULISINE [Suspect]
     Active Substance: INSULIN GLULISINE
     Dosage: 8 U, TID
     Dates: start: 20181112
  2. ASPAVOR [Concomitant]
     Active Substance: ATORVASTATIN
     Dosage: 20 MG, QD
     Dates: start: 20180904
  3. ECOTRIN [Concomitant]
     Active Substance: ASPIRIN
     Dosage: 81 MG, QD
     Dates: start: 20180904
  4. TOUJEO [Suspect]
     Active Substance: INSULIN GLARGINE
     Dosage: 32 U, QD (AFTER SUPPER)
     Dates: start: 20180403
  5. COVERAM [Concomitant]
     Active Substance: AMLODIPINE\PERINDOPRIL
     Dosage: 10 MG, QD
     Dates: start: 20180904
  6. DIAGLUCIDE [Concomitant]
     Active Substance: GLICLAZIDE
     Dosage: 5 MG, QD
     Dates: start: 20180904
  7. BILOCOR [Concomitant]
     Active Substance: BISOPROLOL FUMARATE
     Dosage: 10 MG, QD
     Dates: start: 20181010

REACTIONS (2)
  - Glycosylated haemoglobin increased [Unknown]
  - Renal failure [Not Recovered/Not Resolved]

NARRATIVE: CASE EVENT DATE: 20190210
